FAERS Safety Report 6542307-8 (Version None)
Quarter: 2010Q1

REPORT INFORMATION
  Report Type: 
  Country: None (occurrence: None)
  Receive Date: 20100119
  Receipt Date: 20100108
  Transmission Date: 20100710
  Serious: Yes (Hospitalization)
  Sender: FDA-Public Use
  Company Number: JP-MERCK-1001USA01039

PATIENT
  Age: 63 Year
  Sex: Female

DRUGS (4)
  1. FOSAMAX [Suspect]
     Indication: OSTEOPOROSIS
     Route: 048
     Dates: start: 20091221, end: 20091221
  2. CELECOX [Suspect]
     Indication: KNEE DEFORMITY
     Route: 048
     Dates: start: 20091221
  3. MUCOSTA [Suspect]
     Indication: PROPHYLAXIS AGAINST GASTROINTESTINAL ULCER
     Route: 048
     Dates: start: 20091221
  4. BOI-OGI-TO [Concomitant]
     Route: 048
     Dates: start: 20091221

REACTIONS (2)
  - ANAPHYLACTIC REACTION [None]
  - DRUG ERUPTION [None]
